FAERS Safety Report 8406035-6 (Version None)
Quarter: 2012Q2

REPORT INFORMATION
  Report Type: 
  Country: None (occurrence: None)
  Receive Date: 20120529
  Receipt Date: 20050705
  Transmission Date: 20120825
  Serious: Yes (Other)
  Sender: FDA-Public Use
  Company Number: JP-2012-14774

PATIENT
  Age: 56 Year
  Sex: Male

DRUGS (1)
  1. OPC-41061 (TOLVAPTAN(V4.1) TABLET [Suspect]
     Dosage: 45 MG MILLIGRAM(S), QD

REACTIONS (2)
  - CARDIAC FAILURE [None]
  - CONDITION AGGRAVATED [None]
